FAERS Safety Report 17697101 (Version 1)
Quarter: 2020Q2

REPORT INFORMATION
  Report Type: Spontaneous
  Country: US (occurrence: US)
  Receive Date: 20200423
  Receipt Date: 20200423
  Transmission Date: 20200714
  Serious: No
  Sender: FDA-Public Use
  Company Number: US-TEVA-2020-US-1227604

PATIENT
  Age: 58 Year
  Sex: Female

DRUGS (13)
  1. GLUCOSAMINE-CHONDROITIN-MSM [Concomitant]
  2. AUSTEDO [Suspect]
     Active Substance: DEUTETRABENAZINE
     Dosage: 18 MILLIGRAM DAILY;
     Dates: start: 20200414
  3. CYCLOBENZAPRINE HCL 10 MG TABLET [Concomitant]
  4. CYMBALTA 20 MG CAPSULE [Concomitant]
  5. RITALIN 10 MG TABLET [Concomitant]
  6. LOMOTIL  TABLET [Concomitant]
     Dosage: 2.5-.025MG
  7. ZOFRAN 4 MG TABLET [Concomitant]
  8. TRAMADOL HCL 50 MG TABLET [Concomitant]
  9. MELATONIN 10 MG CAPSULE [Concomitant]
  10. COLACE 100 MG CAPSULE [Concomitant]
  11. MELOXICAM 15 MG TABLET [Concomitant]
     Active Substance: MELOXICAM
  12. PROVIGIL 100 MG TABLET [Concomitant]
  13. PRILOSEC OTC 20 MG TABLET DR [Concomitant]

REACTIONS (3)
  - Photosensitivity reaction [Unknown]
  - Product administration error [Unknown]
  - Malaise [Unknown]

NARRATIVE: CASE EVENT DATE: 20200421
